FAERS Safety Report 9717903 (Version 1)
Quarter: 2013Q4

REPORT INFORMATION
  Report Type: Spontaneous
  Country: US (occurrence: US)
  Receive Date: 20131125
  Receipt Date: 20131125
  Transmission Date: 20140711
  Serious: No
  Sender: FDA-Public Use
  Company Number: US-VIVUS-2013V1000322

PATIENT
  Age: 34 Year
  Sex: Female
  Weight: 78.54 kg

DRUGS (5)
  1. QSYMIA 3.75MG/23MG [Suspect]
     Indication: WEIGHT DECREASED
     Route: 048
     Dates: start: 20130407, end: 20130420
  2. QSYMIA 7.5MG/46MG [Suspect]
     Indication: WEIGHT DECREASED
     Route: 048
     Dates: start: 20130421
  3. PRAVASTATIN [Concomitant]
     Indication: BLOOD CHOLESTEROL INCREASED
     Route: 048
     Dates: start: 2010
  4. KOMBIGLYZE [Concomitant]
     Indication: DIABETES MELLITUS
     Route: 048
     Dates: start: 2012
  5. BIRTH CONTROL PILL [Concomitant]
     Indication: CONTRACEPTION
     Route: 048
     Dates: start: 1994

REACTIONS (1)
  - Myalgia [Not Recovered/Not Resolved]
